FAERS Safety Report 10089722 (Version 1)
Quarter: 2014Q2

REPORT INFORMATION
  Report Type: Spontaneous
  Country: US (occurrence: US)
  Receive Date: 20140421
  Receipt Date: 20140421
  Transmission Date: 20141212
  Serious: No
  Sender: FDA-Public Use
  Company Number: US-009507513-1404USA010569

PATIENT
  Sex: 0

DRUGS (1)
  1. DULERA [Suspect]
     Dosage: 200/5 MCG, TWO PUFFS TWICE DAILY AS NEEDED
     Route: 055
     Dates: start: 20140129

REACTIONS (4)
  - Drug dose omission [Unknown]
  - Incorrect dose administered [Unknown]
  - Product quality issue [Unknown]
  - No adverse event [Unknown]
